FAERS Safety Report 9512863 (Version 1)
Quarter: 2013Q3

REPORT INFORMATION
  Report Type: Spontaneous
  Country: JP (occurrence: JP)
  Receive Date: 20130910
  Receipt Date: 20130910
  Transmission Date: 20140515
  Serious: Yes (Hospitalization, Other)
  Sender: FDA-Public Use
  Company Number: JP-ASTRAZENECA-2013SE67647

PATIENT
  Age: 79 Year
  Sex: Female

DRUGS (4)
  1. FASLODEX [Suspect]
     Indication: BREAST CANCER
     Dosage: DOSE UNKNOWN
     Route: 030
  2. ZOLEDRONIC ACID HYDRATE [Concomitant]
     Dosage: ONCE EVERY FOUR WEEKS, CONTINUED UP TO NINE DOSES
     Dates: start: 201112
  3. LETROZOLE [Concomitant]
  4. TAMOXIFEN [Concomitant]

REACTIONS (3)
  - Altered state of consciousness [Unknown]
  - Blood calcium increased [Unknown]
  - Blood urea nitrogen/creatinine ratio increased [Unknown]
